FAERS Safety Report 6215600-6 (Version None)
Quarter: 2009Q2

REPORT INFORMATION
  Report Type: 
  Country: None (occurrence: None)
  Receive Date: 20090603
  Receipt Date: 20090603
  Transmission Date: 20091009
  Serious: Yes (Life-Threatening, Hospitalization)
  Sender: FDA-Public Use
  Company Number: None

PATIENT
  Age: 30 Year
  Sex: Female

DRUGS (2)
  1. SMX/TMP [Suspect]
     Indication: CELLULITIS
     Dosage: 2 WEEK COURSE
  2. AMOXIL [Suspect]
     Indication: PHARYNGITIS STREPTOCOCCAL

REACTIONS (5)
  - HYPOTENSION [None]
  - OXYGEN SATURATION DECREASED [None]
  - PHARYNGITIS STREPTOCOCCAL [None]
  - STEVENS-JOHNSON SYNDROME [None]
  - TOXIC EPIDERMAL NECROLYSIS [None]
